FAERS Safety Report 12388287 (Version 1)
Quarter: 2016Q2

REPORT INFORMATION
  Report Type: Spontaneous
  Country: US (occurrence: None)
  Receive Date: 20160519
  Receipt Date: 20160519
  Transmission Date: 20160815
  Serious: Yes (Other)
  Sender: FDA-Public Use
  Company Number: None

PATIENT
  Age: 62 Year
  Sex: Female
  Weight: 109.32 kg

DRUGS (5)
  1. LISINOPRIL. [Concomitant]
     Active Substance: LISINOPRIL
  2. FARXIGA [Suspect]
     Active Substance: DAPAGLIFLOZIN PROPANEDIOL
     Indication: TYPE 2 DIABETES MELLITUS
     Route: 048
     Dates: start: 20160513, end: 20160513
  3. ADVIL [Concomitant]
     Active Substance: IBUPROFEN
  4. LOVASTIN [Concomitant]
     Active Substance: LOVASTATIN
  5. AMITRIPTILIN [Concomitant]

REACTIONS (6)
  - Rash [None]
  - Abdominal pain upper [None]
  - Vomiting [None]
  - Back pain [None]
  - Feeling abnormal [None]
  - Nausea [None]

NARRATIVE: CASE EVENT DATE: 20160513
